FAERS Safety Report 20671658 (Version 1)
Quarter: 2022Q2

REPORT INFORMATION
  Report Type: Spontaneous
  Country: US (occurrence: US)
  Receive Date: 20220405
  Receipt Date: 20220405
  Transmission Date: 20220720
  Serious: Yes (Other)
  Sender: FDA-Public Use
  Company Number: US-BRISTOL-MYERS SQUIBB COMPANY-2022-014173

PATIENT
  Age: 68 Year
  Sex: Male
  Weight: 86.636 kg

DRUGS (1)
  1. REVLIMID [Suspect]
     Active Substance: LENALIDOMIDE
     Indication: Plasma cell myeloma
     Dosage: 2W ON, 1W OFF
     Route: 048

REACTIONS (2)
  - Thrombocytopenia [Unknown]
  - Anaemia [Unknown]
